FAERS Safety Report 23952090 (Version 1)
Quarter: 2024Q2

REPORT INFORMATION
  Report Type: Spontaneous
  Country: GB (occurrence: GB)
  Receive Date: 20240607
  Receipt Date: 20240607
  Transmission Date: 20240716
  Serious: Yes (Other)
  Sender: FDA-Public Use
  Company Number: None

PATIENT
  Sex: Female
  Weight: 60 kg

DRUGS (3)
  1. PROGESTERONE [Suspect]
     Active Substance: PROGESTERONE
     Dosage: 200 MILLIGRAM, QD
     Dates: end: 20240430
  2. ESTRADIOL [Concomitant]
     Active Substance: ESTRADIOL
     Indication: Hormone replacement therapy
  3. ANDROFEME [Concomitant]
     Indication: Hormone replacement therapy

REACTIONS (3)
  - Vaginal haemorrhage [Recovered/Resolved]
  - Dysmenorrhoea [Recovered/Resolved]
  - Breast mass [Recovered/Resolved]
